FAERS Safety Report 18237613 (Version 1)
Quarter: 2020Q3

REPORT INFORMATION
  Report Type: Spontaneous
  Country: US (occurrence: US)
  Receive Date: 20200907
  Receipt Date: 20200907
  Transmission Date: 20201103
  Serious: Yes (Other)
  Sender: FDA-Public Use
  Company Number: US-LUPIN PHARMACEUTICALS INC.-2020-05547

PATIENT
  Age: 3 Decade
  Sex: Female

DRUGS (2)
  1. LUMACAFTOR/IVACAFTOR VERTEX [Interacting]
     Active Substance: IVACAFTOR\LUMACAFTOR
     Indication: INFECTIVE PULMONARY EXACERBATION OF CYSTIC FIBROSIS
     Dosage: UNK
     Route: 065
     Dates: start: 2015
  2. LEVONORGESTREL. [Suspect]
     Active Substance: LEVONORGESTREL
     Indication: ENDOMETRIOSIS
     Dosage: UNK (LEVONORGESTREL?RELEASING INTRAUTERINE DEVICE (IUD) INSERTION)
     Route: 015

REACTIONS (3)
  - Haemoptysis [Recovered/Resolved]
  - Drug interaction [Unknown]
  - Menstruation irregular [Unknown]
